FAERS Safety Report 8275317-3 (Version None)
Quarter: 2012Q2

REPORT INFORMATION
  Report Type: 
  Country: None (occurrence: None)
  Receive Date: 20120411
  Receipt Date: 20120329
  Transmission Date: 20120825
  Serious: Yes (Other)
  Sender: FDA-Public Use
  Company Number: JP-ROCHE-743967

PATIENT
  Sex: Male
  Weight: 75 kg

DRUGS (18)
  1. ACTEMRA [Suspect]
     Route: 041
     Dates: start: 20091214, end: 20091214
  2. PREDNISOLONE [Suspect]
     Route: 048
     Dates: start: 20100316, end: 20100510
  3. ACTEMRA [Suspect]
     Route: 041
     Dates: start: 20100215, end: 20100215
  4. ACTEMRA [Suspect]
     Route: 041
     Dates: start: 20100412, end: 20100412
  5. LOBU [Concomitant]
     Route: 048
  6. RHEUMATREX [Concomitant]
     Route: 048
  7. ACTEMRA [Suspect]
     Indication: RHEUMATOID ARTHRITIS
     Route: 041
     Dates: start: 20091109, end: 20091109
  8. ACTEMRA [Suspect]
     Route: 041
     Dates: start: 20100118, end: 20100118
  9. ALENDRONATE SODIUM [Concomitant]
     Route: 048
  10. ACTEMRA [Suspect]
     Route: 041
     Dates: start: 20100315, end: 20100315
  11. ACTEMRA [Suspect]
     Route: 041
     Dates: start: 20100510, end: 20101025
  12. LOXOPROFEN SODIUM [Suspect]
     Indication: RHEUMATOID ARTHRITIS
     Route: 048
  13. TRICHLORMETHIAZIDE [Concomitant]
     Route: 048
  14. PREDNISOLONE [Suspect]
     Indication: RHEUMATOID ARTHRITIS
     Route: 048
  15. PREDNISOLONE [Suspect]
     Route: 048
     Dates: start: 20100119, end: 20100315
  16. PREDNISOLONE [Suspect]
     Route: 048
  17. RABEPRAZOLE SODIUM [Suspect]
     Indication: RHEUMATOID ARTHRITIS
     Route: 048
  18. PROGRAF [Concomitant]
     Dosage: PERORAL AGENT
     Route: 048

REACTIONS (8)
  - ANAEMIA [None]
  - ASPARTATE AMINOTRANSFERASE INCREASED [None]
  - NEUTROPHIL COUNT DECREASED [None]
  - DIVERTICULITIS [None]
  - LYMPHOCYTE COUNT INCREASED [None]
  - RECTAL POLYP [None]
  - LARGE INTESTINAL ULCER [None]
  - ALANINE AMINOTRANSFERASE INCREASED [None]
